FAERS Safety Report 23169222 (Version 1)
Quarter: 2023Q4

REPORT INFORMATION
  Report Type: Spontaneous
  Country: RU (occurrence: RU)
  Receive Date: 20231110
  Receipt Date: 20231110
  Transmission Date: 20240109
  Serious: Yes (Hospitalization, Other)
  Sender: FDA-Public Use
  Company Number: RU-ABBVIE-5489496

PATIENT
  Age: 24 Year
  Sex: Female

DRUGS (2)
  1. UPADACITINIB [Suspect]
     Active Substance: UPADACITINIB
     Indication: Crohn^s disease
     Route: 048
     Dates: start: 20230802, end: 20230915
  2. UPADACITINIB [Suspect]
     Active Substance: UPADACITINIB
     Indication: Crohn^s disease
     Route: 048
     Dates: start: 20231005

REACTIONS (9)
  - Intestinal obstruction [Recovered/Resolved]
  - Gastrooesophageal sphincter insufficiency [Unknown]
  - Oesophagitis [Unknown]
  - Respiratory tract infection viral [Unknown]
  - Laparotomy [Recovered/Resolved]
  - Abdominal adhesions [Recovered/Resolved]
  - Chronic gastritis [Unknown]
  - Gastrointestinal tract mucosal discolouration [Unknown]
  - Angiopathy [Unknown]

NARRATIVE: CASE EVENT DATE: 20230915
